FAERS Safety Report 18320394 (Version 2)
Quarter: 2022Q2

REPORT INFORMATION
  Report Type: Report from Study
  Country: US (occurrence: US)
  Receive Date: 20200928
  Receipt Date: 20220513
  Transmission Date: 20220721
  Serious: No
  Sender: FDA-Public Use
  Company Number: US-TEVA-2020-US-1832444

PATIENT
  Age: 30 Year
  Sex: Female

DRUGS (2)
  1. CLARAVIS [Interacting]
     Active Substance: ISOTRETINOIN
     Indication: Acne cystic
     Route: 065
  2. SUNOSI [Interacting]
     Active Substance: SOLRIAMFETOL
     Indication: Narcolepsy
     Route: 065

REACTIONS (2)
  - Hair colour changes [Unknown]
  - Drug interaction [Unknown]
